FAERS Safety Report 7557794-6 (Version None)
Quarter: 2011Q2

REPORT INFORMATION
  Report Type: 
  Country: None (occurrence: None)
  Receive Date: 20110620
  Receipt Date: 20110613
  Transmission Date: 20111010
  Serious: Yes (Hospitalization)
  Sender: FDA-Public Use
  Company Number: GB-BRISTOL-MYERS SQUIBB COMPANY-15089220

PATIENT
  Age: 68 Year
  Sex: Male

DRUGS (2)
  1. WARFARIN SODIUM [Suspect]
     Indication: THROMBOSIS PROPHYLAXIS
     Dosage: DRUG INTERRUPTED ON 16APR2010+RESTARTED ON 12MAY2010
     Route: 048
     Dates: start: 20090907
  2. PLACEBO [Suspect]
     Indication: THROMBOSIS PROPHYLAXIS
     Dosage: DRUG INTERRUPTED ON 16APR2010+RESTARTED ON 12MAY2010
     Route: 048
     Dates: start: 20090907

REACTIONS (1)
  - CELLULITIS [None]
